FAERS Safety Report 5049158-4 (Version None)
Quarter: 2006Q3

REPORT INFORMATION
  Report Type: 
  Country: None (occurrence: None)
  Receive Date: 20060712
  Receipt Date: 20060419
  Transmission Date: 20061208
  Serious: Yes (Life-Threatening, Hospitalization, Other)
  Sender: FDA-Public Use
  Company Number: US-GLAXOSMITHKLINE-A0602804A

PATIENT
  Age: 41 Year
  Sex: Female
  Weight: 100 kg

DRUGS (4)
  1. IMITREX [Suspect]
     Indication: MIGRAINE
     Dosage: 100MG UNKNOWN
     Route: 048
     Dates: end: 20060201
  2. HYZAAR [Concomitant]
     Indication: HYPERTENSION
  3. YASMIN [Concomitant]
  4. CLARINEX [Concomitant]
     Indication: MULTIPLE ALLERGIES

REACTIONS (5)
  - ARTERIOSPASM CORONARY [None]
  - CHEST PAIN [None]
  - COLD SWEAT [None]
  - HYPERHIDROSIS [None]
  - PALLOR [None]
